FAERS Safety Report 8113376-9 (Version None)
Quarter: 2012Q1

REPORT INFORMATION
  Report Type: 
  Country: None (occurrence: None)
  Receive Date: 20120203
  Receipt Date: 20120201
  Transmission Date: 20120608
  Serious: Yes (Death)
  Sender: FDA-Public Use
  Company Number: PHHY2012ES008723

PATIENT
  Age: 52 Year
  Sex: Male

DRUGS (3)
  1. RASILEZ [Suspect]
     Indication: HYPERTENSION
  2. INSULIN [Concomitant]
     Dosage: UNK
  3. ACE INHIBITORS [Concomitant]

REACTIONS (1)
  - HAEMORRHAGE INTRACRANIAL [None]
